FAERS Safety Report 7228735 (Version 7)
Quarter: 2013Q2

REPORT INFORMATION
  Report Type: Spontaneous
  Country: US (occurrence: US)
  Receive Date: 20091223
  Receipt Date: 20130617
  Transmission Date: 20140414
  Serious: Yes (Hospitalization)
  Sender: FDA-Public Use
  Company Number: US-BAYER-200942711NA

PATIENT
  Age: 44 Year
  Sex: Female
  Weight: 111.11 kg

DRUGS (7)
  1. YAZ [Suspect]
     Route: 048
     Dates: start: 200806, end: 20080703
  2. LEVOTHYROXINE [Concomitant]
     Dosage: 75 MCG/24HR, UNK
  3. REQUIP [Concomitant]
     Indication: RESTLESS LEGS SYNDROME
  4. FENOFIBRATE [Concomitant]
     Indication: HYPERLIPIDAEMIA
  5. MIDRIN [Concomitant]
     Indication: MIGRAINE
  6. IBUPROFEN [Concomitant]
     Indication: PAIN
  7. OMEGA-3 [Concomitant]
     Dosage: UNK
     Route: 048

REACTIONS (3)
  - Cerebrovascular accident [Unknown]
  - Injury [Unknown]
  - Thrombosis [Unknown]
